FAERS Safety Report 20532793 (Version 1)
Quarter: 2022Q1

REPORT INFORMATION
  Report Type: Spontaneous
  Country: US (occurrence: US)
  Receive Date: 20220301
  Receipt Date: 20220301
  Transmission Date: 20220423
  Serious: No
  Sender: FDA-Public Use
  Company Number: US-GW PHARMA-202202USGW00895

PATIENT
  Sex: Male
  Weight: 108 kg

DRUGS (1)
  1. EPIDIOLEX [Suspect]
     Active Substance: CANNABIDIOL
     Indication: Product used for unknown indication
     Dosage: 10.74 MG/KG/DAY, 580 MG, BID
     Route: 048
     Dates: start: 20190521

REACTIONS (1)
  - Aspiration [Not Recovered/Not Resolved]
